FAERS Safety Report 5396620-0 (Version None)
Quarter: 2007Q3

REPORT INFORMATION
  Report Type: 
  Country: None (occurrence: None)
  Receive Date: 20070718
  Receipt Date: 20070508
  Transmission Date: 20080115
  Serious: Yes (Hospitalization)
  Sender: FDA-Public Use
  Company Number: 2006113611

PATIENT
  Age: 42 Year
  Sex: Male

DRUGS (2)
  1. CELEBREX [Suspect]
     Indication: ARTHRALGIA
     Dosage: 200 MG (200MG, 1 IN 1 D), ORAL
     Route: 048
     Dates: start: 20010430, end: 20010530
  2. VIOXX [Suspect]
     Dosage: ORAL
     Route: 048
     Dates: start: 20010316, end: 20010509

REACTIONS (1)
  - MYOCARDIAL INFARCTION [None]
